FAERS Safety Report 4726090-4 (Version None)
Quarter: 2005Q3

REPORT INFORMATION
  Report Type: 
  Country: None (occurrence: None)
  Receive Date: 20050727
  Receipt Date: 20050627
  Transmission Date: 20060218
  Serious: Yes (Hospitalization, Other)
  Sender: FDA-Public Use
  Company Number: FR-BRISTOL-MYERS SQUIBB COMPANY-13019948

PATIENT
  Age: 65 Year
  Sex: Female

DRUGS (6)
  1. GLUCOPHAGE [Suspect]
     Indication: DIABETES MELLITUS NON-INSULIN-DEPENDENT
     Route: 048
     Dates: end: 20050627
  2. CO-RENITEN [Suspect]
     Indication: HYPERTENSION
     Route: 048
  3. BEFIZAL [Concomitant]
     Indication: HYPERCHOLESTEROLAEMIA
     Route: 048
  4. BISOPROLOL [Concomitant]
     Indication: HYPERTENSION
  5. INSULIN [Concomitant]
     Indication: DIABETES MELLITUS NON-INSULIN-DEPENDENT
  6. EUPRESSYL [Concomitant]
     Indication: HYPERTENSION
     Route: 048

REACTIONS (4)
  - DEHYDRATION [None]
  - ESCHERICHIA URINARY TRACT INFECTION [None]
  - LACTIC ACIDOSIS [None]
  - RENAL FAILURE ACUTE [None]
